FAERS Safety Report 5127853-6 (Version None)
Quarter: 2006Q4

REPORT INFORMATION
  Report Type: 
  Country: None (occurrence: None)
  Receive Date: 20061016
  Receipt Date: 20060810
  Transmission Date: 20070319
  Serious: Yes (Hospitalization, Other)
  Sender: FDA-Public Use
  Company Number: PHMT2006CA01672

PATIENT
  Age: 26 Year
  Sex: Female
  Weight: 78 kg

DRUGS (9)
  1. MYFORTIC [Suspect]
     Indication: RENAL TRANSPLANT
     Dosage: 720 MG BID
     Route: 048
     Dates: start: 20060628, end: 20060706
  2. CELLCEPT [Concomitant]
     Indication: RENAL TRANSPLANT
     Dosage: UNK, UNK
     Dates: start: 20031201
  3. REPLAVITE [Concomitant]
  4. TACROLIMUS [Concomitant]
  5. NORVASC [Concomitant]
  6. ZOLOFT [Concomitant]
  7. TYLENOL W/ CODEINE NO. 4 [Concomitant]
  8. DIAZEPAM [Concomitant]
     Dosage: UNK, QD
  9. HYDROCHLOROTHIAZIDE [Concomitant]

REACTIONS (9)
  - ARTHRALGIA [None]
  - BACK PAIN [None]
  - DIARRHOEA [None]
  - DYSPNOEA [None]
  - GAIT DISTURBANCE [None]
  - HYPERSENSITIVITY [None]
  - OEDEMA [None]
  - PAIN IN EXTREMITY [None]
  - THROAT TIGHTNESS [None]
